FAERS Safety Report 24716599 (Version 1)
Quarter: 2024Q4

REPORT INFORMATION
  Report Type: Spontaneous
  Country: US (occurrence: None)
  Receive Date: 20241209
  Receipt Date: 20241209
  Transmission Date: 20250114
  Serious: No
  Sender: Public
  Company Number: None

PATIENT
  Age: 60 Year
  Sex: Female

DRUGS (10)
  1. ORENCIA [Suspect]
     Active Substance: ABATACEPT
     Indication: Rheumatoid arthritis
     Dosage: FREQ: INJECT 125 MG UNDER THE SKIN (SUBCUTANEOUS INJECTION) WEEKLY
     Route: 058
     Dates: start: 20230803
  2. AZITHROMYCIN [Concomitant]
     Active Substance: AZITHROMYCIN
  3. CELECOXIB [Concomitant]
     Active Substance: CELECOXIB
  4. DEXAMETHASONE [Concomitant]
     Active Substance: DEXAMETHASONE
  5. DILTIAZEM [Concomitant]
     Active Substance: DILTIAZEM
  6. DILTIAZEM [Concomitant]
     Active Substance: DILTIAZEM
  7. DULOXETINE [Concomitant]
     Active Substance: DULOXETINE
  8. FLUOXETINE [Concomitant]
     Active Substance: FLUOXETINE HYDROCHLORIDE
  9. FOLIC ACID [Concomitant]
     Active Substance: FOLIC ACID
  10. ESTRADIOL [Concomitant]
     Active Substance: ESTRADIOL

REACTIONS (3)
  - Pain [None]
  - Loss of personal independence in daily activities [None]
  - Therapy interrupted [None]

NARRATIVE: CASE EVENT DATE: 20241120
